FAERS Safety Report 4315346-5 (Version None)
Quarter: 2004Q1

REPORT INFORMATION
  Report Type: 
  Country: None (occurrence: None)
  Receive Date: 20040310
  Receipt Date: 20040310
  Transmission Date: 20041129
  Serious: Yes (Death)
  Sender: FDA-Public Use
  Company Number: None

PATIENT
  Age: 83 Year
  Sex: Male

DRUGS (6)
  1. GLEEVEC [Suspect]
     Indication: GASTROINTESTINAL STROMAL TUMOUR
     Dosage: 400 MG PO BID
     Route: 048
     Dates: start: 20010809, end: 20031127
  2. EXELON [Concomitant]
  3. KLOR-CON [Concomitant]
  4. BURNETANIDE [Concomitant]
  5. NIZATIDINE [Concomitant]
  6. PLETAL [Concomitant]

REACTIONS (3)
  - GASTROINTESTINAL STROMAL TUMOUR [None]
  - MALIGNANT NEOPLASM PROGRESSION [None]
  - METASTASES TO LIVER [None]
